FAERS Safety Report 5947889-2 (Version None)
Quarter: 2008Q4

REPORT INFORMATION
  Report Type: 
  Country: None (occurrence: None)
  Receive Date: 20081111
  Receipt Date: 20080721
  Transmission Date: 20090506
  Serious: No
  Sender: FDA-Public Use
  Company Number: A0738663A

PATIENT

DRUGS (1)
  1. TREXIMET [Suspect]
     Indication: MIGRAINE
     Route: 048
     Dates: start: 20080701, end: 20080701

REACTIONS (2)
  - HYPERSENSITIVITY [None]
  - VOMITING [None]
